FAERS Safety Report 19252528 (Version 1)
Quarter: 2021Q2

REPORT INFORMATION
  Report Type: Spontaneous
  Country: HU (occurrence: HU)
  Receive Date: 20210512
  Receipt Date: 20210512
  Transmission Date: 20210717
  Serious: Yes (Other)
  Sender: FDA-Public Use
  Company Number: HU-JNJFOC-20210508352

PATIENT

DRUGS (5)
  1. SELEXIPAG [Concomitant]
     Active Substance: SELEXIPAG
     Route: 065
     Dates: start: 201904
  2. STAYVEER [Suspect]
     Active Substance: BOSENTAN
     Indication: PULMONARY ARTERIAL HYPERTENSION
     Route: 065
  3. SELEXIPAG [Concomitant]
     Active Substance: SELEXIPAG
     Indication: PULMONARY ARTERIAL HYPERTENSION
     Route: 065
     Dates: start: 201904
  4. SELEXIPAG [Concomitant]
     Active Substance: SELEXIPAG
     Route: 065
     Dates: start: 201906
  5. SELEXIPAG [Concomitant]
     Active Substance: SELEXIPAG
     Route: 065
     Dates: start: 202006

REACTIONS (3)
  - Off label use [Unknown]
  - Product use issue [Unknown]
  - Oxygen saturation decreased [Recovered/Resolved]

NARRATIVE: CASE EVENT DATE: 201805
